FAERS Safety Report 8712109 (Version 2)
Quarter: 2012Q4

REPORT INFORMATION
  Report Type: Report from Study
  Country: BR (occurrence: BR)
  Receive Date: 20120807
  Receipt Date: 20120913
  Transmission Date: 20130627
  Serious: Yes (Other)
  Sender: FDA-Public Use
  Company Number: BR-ROCHE-1097252

PATIENT
  Sex: Female
  Weight: 56 kg

DRUGS (5)
  1. ROACTEMRA [Suspect]
     Indication: RHEUMATOID ARTHRITIS
     Route: 065
     Dates: start: 20101118
  2. ARADOIS [Concomitant]
  3. PRESSAT [Concomitant]
  4. PANTOPRAZOL [Concomitant]
  5. TRAVATAN [Concomitant]

REACTIONS (4)
  - Urinary tract infection [Unknown]
  - Blood urine present [Recovered/Resolved]
  - Glaucoma [Unknown]
  - Calculus urinary [Not Recovered/Not Resolved]
